FAERS Safety Report 8927792 (Version 1)
Quarter: 2012Q4

REPORT INFORMATION
  Report Type: Report from Study
  Country: IT (occurrence: IT)
  Receive Date: 20121127
  Receipt Date: 20121127
  Transmission Date: 20130627
  Serious: Yes (Life-Threatening, Hospitalization, Disabling)
  Sender: FDA-Public Use
  Company Number: IT-ROCHE-1160369

PATIENT
  Age: 82 Year
  Sex: Female
  Weight: 75 kg

DRUGS (4)
  1. RANIBIZUMAB [Suspect]
     Indication: DIABETIC RETINAL OEDEMA
     Route: 050
     Dates: start: 20120522, end: 20120522
  2. RANIBIZUMAB [Suspect]
     Route: 050
     Dates: start: 20121023, end: 20121023
  3. METFORMIN [Concomitant]
  4. GLIBOMET [Concomitant]

REACTIONS (2)
  - Myocardial ischaemia [Recovered/Resolved]
  - Hypertension [Recovered/Resolved]
